FAERS Safety Report 16029217 (Version 1)
Quarter: 2019Q2

REPORT INFORMATION
  Report Type: Spontaneous
  Country: US (occurrence: US)
  Receive Date: 20190302
  Receipt Date: 20190302
  Transmission Date: 20190711
  Serious: Yes (Other)
  Sender: FDA-Public Use
  Company Number: None

PATIENT
  Age: 59 Year
  Sex: Female
  Weight: 60.75 kg

DRUGS (3)
  1. FISH OIL WITH DHA [Concomitant]
  2. AZITHROMYCIN ANHYDROUS. [Suspect]
     Active Substance: AZITHROMYCIN ANHYDROUS
     Indication: STREPTOCOCCAL INFECTION
     Dosage: ?          QUANTITY:1 TABLET(S);?
     Route: 048
  3. VITAMIN C [Concomitant]
     Active Substance: ASCORBIC ACID

REACTIONS (4)
  - Urticaria [None]
  - Swelling [None]
  - Erythema [None]
  - Flushing [None]

NARRATIVE: CASE EVENT DATE: 20190218
